FAERS Safety Report 8603211-4 (Version None)
Quarter: 2012Q3

REPORT INFORMATION
  Report Type: 
  Country: None (occurrence: None)
  Receive Date: 20120817
  Receipt Date: 20120222
  Transmission Date: 20120928
  Serious: Yes (Other)
  Sender: FDA-Public Use
  Company Number: US-ROCHE-1100237

PATIENT
  Sex: Female
  Weight: 54.48 kg

DRUGS (1)
  1. MABTHERA [Suspect]
     Indication: CHRONIC LYMPHOCYTIC LEUKAEMIA
     Route: 042
     Dates: start: 20110901

REACTIONS (3)
  - LOSS OF CONSCIOUSNESS [None]
  - BALANCE DISORDER [None]
  - VOMITING [None]
